FAERS Safety Report 23433991 (Version 2)
Quarter: 2024Q2

REPORT INFORMATION
  Report Type: Report from Study
  Country: MX (occurrence: MX)
  Receive Date: 20240123
  Receipt Date: 20240521
  Transmission Date: 20240716
  Serious: Yes (Death, Hospitalization, Other)
  Sender: FDA-Public Use
  Company Number: MX-Merck Healthcare KGaA-2023492833

PATIENT
  Age: 67 Year
  Sex: Male

DRUGS (2)
  1. CETUXIMAB [Suspect]
     Active Substance: CETUXIMAB
     Indication: Colorectal cancer metastatic
     Dosage: 800 MG, 2/M (ONCE IN 2 WEEKS)
     Route: 042
     Dates: start: 20231205
  2. FOLIC ACID [Concomitant]
     Active Substance: FOLIC ACID
     Indication: Product used for unknown indication

REACTIONS (14)
  - Malignant neoplasm progression [Fatal]
  - Pulmonary oedema [Not Recovered/Not Resolved]
  - Renal disorder [Recovering/Resolving]
  - Immunodeficiency [Not Recovered/Not Resolved]
  - Syncope [Unknown]
  - Peripheral swelling [Not Recovered/Not Resolved]
  - Contusion [Not Recovered/Not Resolved]
  - Platelet count decreased [Not Recovered/Not Resolved]
  - Hypotension [Not Recovered/Not Resolved]
  - Feeding disorder [Not Recovered/Not Resolved]
  - Weight decreased [Not Recovered/Not Resolved]
  - Vomiting [Not Recovered/Not Resolved]
  - Diarrhoea [Not Recovered/Not Resolved]
  - Stomatitis [Not Recovered/Not Resolved]

NARRATIVE: CASE EVENT DATE: 20240115
